FAERS Safety Report 6615113-3 (Version None)
Quarter: 2010Q1

REPORT INFORMATION
  Report Type: 
  Country: None (occurrence: None)
  Receive Date: 20100305
  Receipt Date: 20100224
  Transmission Date: 20100710
  Serious: Yes (Hospitalization, Other)
  Sender: FDA-Public Use
  Company Number: JP-PFIZER INC-2010025206

PATIENT
  Age: 50 Year
  Sex: Female
  Weight: 43 kg

DRUGS (1)
  1. METHYLPREDNISOLONE SODIUM SUCCINATE [Suspect]
     Indication: RENAL FAILURE

REACTIONS (1)
  - OESOPHAGEAL CANDIDIASIS [None]
